FAERS Safety Report 16999043 (Version 2)
Quarter: 2019Q4

REPORT INFORMATION
  Report Type: Report from Study
  Country: US (occurrence: US)
  Receive Date: 20191106
  Receipt Date: 20191119
  Transmission Date: 20200122
  Serious: Yes (Other)
  Sender: FDA-Public Use
  Company Number: NVSC2019US025234

PATIENT
  Sex: Male

DRUGS (1)
  1. ENTRESTO [Suspect]
     Active Substance: SACUBITRIL\VALSARTAN
     Indication: CARDIAC FAILURE
     Dosage: 0.5 DF (24MG SACUBITRIL/ 26MG VALSARTAN), QD
     Route: 048

REACTIONS (5)
  - Syncope [Unknown]
  - Fall [Unknown]
  - Prescribed underdose [Unknown]
  - Dizziness [Unknown]
  - Wrong technique in product usage process [Unknown]
